FAERS Safety Report 9985155 (Version 1)
Quarter: 2014Q1

REPORT INFORMATION
  Report Type: Report from Study
  Country: US (occurrence: US)
  Receive Date: 20140307
  Receipt Date: 20140307
  Transmission Date: 20141002
  Serious: No
  Sender: FDA-Public Use
  Company Number: US-ABBVIE-13P-163-1185164-00

PATIENT
  Sex: Female

DRUGS (7)
  1. HUMIRA [Suspect]
     Indication: RHEUMATOID ARTHRITIS
     Dates: start: 2006
  2. HYDROCODONE/ACETAMINOPHEN [Suspect]
     Indication: ARTHRALGIA
  3. HYDROCODONE/ACETAMINOPHEN [Suspect]
     Indication: PAIN IN EXTREMITY
  4. MELOXICAM [Suspect]
     Indication: PAIN IN EXTREMITY
  5. MELOXICAM [Suspect]
     Indication: ARTHRALGIA
  6. MUSCLE RELAXANTS [Suspect]
     Indication: ARTHRALGIA
  7. MUSCLE RELAXANTS [Suspect]
     Indication: PAIN IN EXTREMITY

REACTIONS (10)
  - Oropharyngeal pain [Not Recovered/Not Resolved]
  - Dysphagia [Not Recovered/Not Resolved]
  - Urinary tract infection [Unknown]
  - Viral infection [Unknown]
  - Hypersensitivity [Unknown]
  - Rheumatoid arthritis [Not Recovered/Not Resolved]
  - Arthralgia [Not Recovered/Not Resolved]
  - Pain in extremity [Not Recovered/Not Resolved]
  - Rash [Not Recovered/Not Resolved]
  - Drug ineffective [Unknown]
